FAERS Safety Report 19050512 (Version 1)
Quarter: 2021Q1

REPORT INFORMATION
  Report Type: Other
  Country: US (occurrence: US)
  Receive Date: 20210323
  Receipt Date: 20210323
  Transmission Date: 20210420
  Serious: Yes (Life-Threatening)
  Sender: FDA-Public Use
  Company Number: US-RIGHT VALUE DRUG STORES, LLC-2108359

PATIENT
  Age: 60 Year
  Sex: Male
  Weight: 81.82 kg

DRUGS (1)
  1. TESTOSTERONE 200 MG PEL [Suspect]
     Active Substance: TESTOSTERONE
     Route: 058
     Dates: start: 20200828, end: 20210112

REACTIONS (1)
  - Cerebellar stroke [Recovered/Resolved]

NARRATIVE: CASE EVENT DATE: 20210309
